FAERS Safety Report 21350628 (Version 1)
Quarter: 2022Q3

REPORT INFORMATION
  Report Type: Spontaneous
  Country: US (occurrence: US)
  Receive Date: 20220919
  Receipt Date: 20220919
  Transmission Date: 20221027
  Serious: Yes (Other)
  Sender: FDA-Public Use
  Company Number: US-PFIZER INC-PV202200065323

PATIENT

DRUGS (1)
  1. ACETYLCYSTEINE [Suspect]
     Active Substance: ACETYLCYSTEINE
     Indication: Bronchiectasis
     Dosage: UNK UNK, 2X/DAY

REACTIONS (4)
  - Drug dependence [Unknown]
  - Off label use [Unknown]
  - Emotional distress [Unknown]
  - Disease progression [Unknown]
